FAERS Safety Report 6123496-6 (Version None)
Quarter: 2009Q1

REPORT INFORMATION
  Report Type: 
  Country: None (occurrence: None)
  Receive Date: 20090318
  Receipt Date: 20090312
  Transmission Date: 20090719
  Serious: Yes (Hospitalization, Other)
  Sender: FDA-Public Use
  Company Number: US-ABBOTT-09P-163-0562628-00

PATIENT
  Sex: Female

DRUGS (5)
  1. SIMCOR [Suspect]
     Indication: BLOOD CHOLESTEROL INCREASED
     Dosage: 1000MG/20MG DAILY
     Dates: start: 20090101, end: 20090223
  2. SIMCOR [Suspect]
     Dosage: 500MG/20MG DAILY
     Dates: start: 20081101, end: 20090101
  3. SIMCOR [Suspect]
     Dosage: 500/20MG DAILY
     Dates: start: 20090313
  4. PREDNISONE TAB [Concomitant]
     Indication: DIVERTICULITIS
     Dosage: UNKNOWN
  5. ASPIRIN [Concomitant]
     Indication: PROPHYLAXIS

REACTIONS (3)
  - HAEMOGLOBIN DECREASED [None]
  - HAEMORRHOIDS [None]
  - RECTAL HAEMORRHAGE [None]
